FAERS Safety Report 7346979-X (Version None)
Quarter: 2011Q1

REPORT INFORMATION
  Report Type: 
  Country: None (occurrence: None)
  Receive Date: 20110311
  Receipt Date: 20110224
  Transmission Date: 20110831
  Serious: Yes (Other)
  Sender: FDA-Public Use
  Company Number: PHHY2011BR16310

PATIENT
  Sex: Female

DRUGS (5)
  1. CITALOPRAM [Concomitant]
  2. DIURISA [Concomitant]
     Dosage: 25 MG, UNK
  3. PROCOMVAX [Concomitant]
  4. DIOVAN AMLO FIX [Suspect]
     Dosage: 320/5 MG
     Route: 048
  5. TYLENOL [Concomitant]
     Dosage: 50 MG, UNK

REACTIONS (7)
  - MEMORY IMPAIRMENT [None]
  - GAIT DISTURBANCE [None]
  - MALAISE [None]
  - DIZZINESS [None]
  - EYE DISORDER [None]
  - CEREBROVASCULAR ACCIDENT [None]
  - PARKINSON'S DISEASE [None]
